FAERS Safety Report 13356528 (Version 1)
Quarter: 2017Q1

REPORT INFORMATION
  Report Type: Spontaneous
  Country: JP (occurrence: JP)
  Receive Date: 20170321
  Receipt Date: 20170321
  Transmission Date: 20170429
  Serious: Yes (Other)
  Sender: FDA-Public Use
  Company Number: JP-PFIZER INC-2017114084

PATIENT
  Age: 25 Year
  Sex: Female

DRUGS (3)
  1. SAIREITO [Suspect]
     Active Substance: HERBALS
     Route: 048
  2. TOKISHAKUYAKUSAN [Suspect]
     Active Substance: HERBALS
     Route: 048
  3. ESTROGENS CONJUGATED [Suspect]
     Active Substance: ESTROGENS, CONJUGATED
     Route: 048

REACTIONS (2)
  - Drug-induced liver injury [Recovered/Resolved]
  - Autoimmune hepatitis [Recovered/Resolved]
